FAERS Safety Report 8251617-8 (Version None)
Quarter: 2012Q2

REPORT INFORMATION
  Report Type: 
  Country: None (occurrence: None)
  Receive Date: 20120402
  Receipt Date: 20111229
  Transmission Date: 20120825
  Serious: No
  Sender: FDA-Public Use
  Company Number: US-ABBOTT-12P-163-0888460-00

PATIENT
  Age: 46 Year
  Sex: Male
  Weight: 72.64 kg

DRUGS (2)
  1. CIALIS [Concomitant]
     Indication: ERECTILE DYSFUNCTION
  2. ANDROGEL [Suspect]
     Indication: BLOOD TESTOSTERONE DECREASED
     Dosage: 4-6 PUMPS PER DAY
     Dates: start: 20110701

REACTIONS (3)
  - NERVOUSNESS [None]
  - FEELING ABNORMAL [None]
  - BREAST ENLARGEMENT [None]
